FAERS Safety Report 14673149 (Version 1)
Quarter: 2018Q1

REPORT INFORMATION
  Report Type: Spontaneous
  Country: GR (occurrence: GR)
  Receive Date: 20180323
  Receipt Date: 20180323
  Transmission Date: 20180509
  Serious: Yes (Death, Other)
  Sender: FDA-Public Use
  Company Number: PHHY2018GR025373

PATIENT
  Age: 42 Year
  Sex: Male

DRUGS (2)
  1. COPALIA [Suspect]
     Active Substance: AMLODIPINE BESYLATE\VALSARTAN
     Indication: HYPERTENSION
     Route: 065
  2. VOTRIENT [Suspect]
     Active Substance: PAZOPANIB HYDROCHLORIDE
     Indication: CLEAR CELL RENAL CELL CARCINOMA
     Dosage: 800 MG, UNK
     Route: 065
     Dates: start: 20150715

REACTIONS (14)
  - Lymphadenopathy [Unknown]
  - Kidney infection [Unknown]
  - Liver disorder [Unknown]
  - Renal impairment [Unknown]
  - Lung disorder [Unknown]
  - Candida infection [Unknown]
  - Palmar-plantar erythrodysaesthesia syndrome [Unknown]
  - Pulmonary mass [Unknown]
  - Abdominal mass [Unknown]
  - Hypertriglyceridaemia [Unknown]
  - Death [Fatal]
  - Pain [Unknown]
  - Kidney enlargement [Unknown]
  - Hypertension [Recovered/Resolved]

NARRATIVE: CASE EVENT DATE: 201705
